FAERS Safety Report 7786549-2 (Version None)
Quarter: 2011Q3

REPORT INFORMATION
  Report Type: 
  Country: None (occurrence: None)
  Receive Date: 20110929
  Receipt Date: 20110922
  Transmission Date: 20111222
  Serious: Yes (Hospitalization)
  Sender: FDA-Public Use
  Company Number: JP-GLAXOSMITHKLINE-B0746075A

PATIENT
  Sex: Male

DRUGS (5)
  1. DUTASTERIDE [Suspect]
     Indication: BENIGN PROSTATIC HYPERPLASIA
     Dosage: .5MG PER DAY
     Route: 048
     Dates: start: 20110719
  2. EVIPROSTAT [Concomitant]
     Indication: BENIGN PROSTATIC HYPERPLASIA
     Dosage: 3IUAX PER DAY
     Route: 048
     Dates: start: 20110426
  3. CHINESE MEDICINE [Concomitant]
     Indication: CONSTIPATION
     Dosage: 7.5G PER DAY
     Route: 048
     Dates: start: 20110426
  4. PURSENNID [Concomitant]
     Indication: CONSTIPATION
     Dosage: 24MG PER DAY
     Route: 048
     Dates: start: 20110426
  5. FLIVAS [Concomitant]
     Indication: BENIGN PROSTATIC HYPERPLASIA
     Dosage: 75MG PER DAY
     Route: 048
     Dates: start: 20110426

REACTIONS (1)
  - MYOCARDIAL INFARCTION [None]
